FAERS Safety Report 9059919 (Version 1)
Quarter: 2013Q1

REPORT INFORMATION
  Report Type: Spontaneous
  Country: US (occurrence: None)
  Receive Date: 20130207
  Receipt Date: 20130207
  Transmission Date: 20140127
  Serious: Yes (Other)
  Sender: FDA-Public Use
  Company Number: None

PATIENT
  Age: 64 Year
  Sex: Female
  Weight: 74.84 kg

DRUGS (1)
  1. CLONIDINE 0.1 MG [Suspect]
     Indication: HYPERTENSION
     Dates: start: 20130204, end: 20130204

REACTIONS (3)
  - Somnolence [None]
  - Photopsia [None]
  - Headache [None]
